FAERS Safety Report 17622937 (Version 1)
Quarter: 2020Q2

REPORT INFORMATION
  Report Type: Spontaneous
  Country: US (occurrence: US)
  Receive Date: 20200403
  Receipt Date: 20200403
  Transmission Date: 20200713
  Serious: No
  Sender: FDA-Public Use
  Company Number: US-PFIZER INC-2020137481

PATIENT
  Sex: Female

DRUGS (1)
  1. LYRICA [Suspect]
     Active Substance: PREGABALIN
     Indication: FIBROMYALGIA
     Dosage: UNK (2 IN THE AM AND 2 IN PM )

REACTIONS (5)
  - Drug withdrawal syndrome [Unknown]
  - Chills [Unknown]
  - Cold sweat [Unknown]
  - Insomnia [Unknown]
  - Arthralgia [Unknown]
